FAERS Safety Report 13094535 (Version 1)
Quarter: 2017Q1

REPORT INFORMATION
  Report Type: Spontaneous
  Country: GB (occurrence: GB)
  Receive Date: 20170106
  Receipt Date: 20170106
  Transmission Date: 20170428
  Serious: Yes (Hospitalization, Other)
  Sender: FDA-Public Use
  Company Number: GB-PERRIGO-16GB023258

PATIENT
  Age: 76 Year
  Sex: Female

DRUGS (9)
  1. ACETAMINOPHEN. [Suspect]
     Active Substance: ACETAMINOPHEN
     Indication: INTERVERTEBRAL DISCITIS
     Dosage: 1 G, QID
     Route: 048
  2. ACETAMINOPHEN. [Suspect]
     Active Substance: ACETAMINOPHEN
     Route: 048
  3. ACETAMINOPHEN. [Suspect]
     Active Substance: ACETAMINOPHEN
     Route: 048
  4. RIFAMPICIN [Concomitant]
     Active Substance: RIFAMPIN
     Indication: INTERVERTEBRAL DISCITIS
     Route: 048
  5. FLUCLOXACILLIN [Suspect]
     Active Substance: FLUCLOXACILLIN
     Indication: INTERVERTEBRAL DISCITIS
     Route: 042
  6. FLUCLOXACILLIN [Suspect]
     Active Substance: FLUCLOXACILLIN
     Indication: PSOAS ABSCESS
     Dosage: UNK
     Route: 042
  7. FLUCLOXACILLIN [Suspect]
     Active Substance: FLUCLOXACILLIN
     Indication: EXTRADURAL ABSCESS
     Route: 042
  8. RIFAMPICIN [Concomitant]
     Active Substance: RIFAMPIN
     Indication: PSOAS ABSCESS
     Route: 048
  9. RIFAMPICIN [Concomitant]
     Active Substance: RIFAMPIN
     Indication: EXTRADURAL ABSCESS
     Dosage: UNK
     Route: 048

REACTIONS (1)
  - Metabolic acidosis [Recovered/Resolved]
